FAERS Safety Report 13443457 (Version 1)
Quarter: 2017Q2

REPORT INFORMATION
  Report Type: Spontaneous
  Country: US (occurrence: US)
  Receive Date: 20170414
  Receipt Date: 20170414
  Transmission Date: 20170830
  Serious: No
  Sender: FDA-Public Use
  Company Number: US-PIERREL PHARMA S.P.A.-2016PIR00031

PATIENT
  Age: 62 Year
  Sex: Female
  Weight: 63.49 kg

DRUGS (8)
  1. ORABLOC [Suspect]
     Active Substance: ARTICAINE HYDROCHLORIDE\EPINEPHRINE BITARTRATE
     Indication: ANAESTHESIA
     Dosage: UNK, ONCE
     Dates: start: 20160711, end: 20160711
  2. PEPCID [Concomitant]
     Active Substance: FAMOTIDINE
  3. SYNTHROID [Concomitant]
     Active Substance: LEVOTHYROXINE SODIUM
  4. VITAMIN D [Concomitant]
     Active Substance: CHOLECALCIFEROL
  5. ALBUTEROL. [Concomitant]
     Active Substance: ALBUTEROL
  6. ONSET (SODIUM BICARBONATE) [Suspect]
     Active Substance: SODIUM BICARBONATE
     Dosage: UNK, ONCE
  7. SYMBICORT [Concomitant]
     Active Substance: BUDESONIDE\FORMOTEROL FUMARATE DIHYDRATE
  8. PERIDEX [Suspect]
     Active Substance: CHLORHEXIDINE GLUCONATE
     Dosage: UNK
     Dates: end: 20160720

REACTIONS (7)
  - Tremor [Not Recovered/Not Resolved]
  - Lip swelling [Recovered/Resolved]
  - Hypoaesthesia [Not Recovered/Not Resolved]
  - Nasal congestion [Not Recovered/Not Resolved]
  - Herpes zoster [Unknown]
  - Paraesthesia [Recovered/Resolved]
  - Drug effect prolonged [Not Recovered/Not Resolved]

NARRATIVE: CASE EVENT DATE: 201607
